FAERS Safety Report 26206632 (Version 1)
Quarter: 2025Q4

REPORT INFORMATION
  Report Type: Spontaneous
  Country: US (occurrence: US)
  Receive Date: 20251229
  Receipt Date: 20251229
  Transmission Date: 20260117
  Serious: No
  Sender: BAUSCH AND LOMB
  Company Number: US-BAUSCHBL-2025BNL034208

PATIENT
  Age: 81 Year
  Sex: Female

DRUGS (1)
  1. ERYTHROMYCIN [Suspect]
     Active Substance: ERYTHROMYCIN
     Indication: Hordeolum
     Route: 047
     Dates: start: 20251219

REACTIONS (3)
  - Eye irritation [Unknown]
  - Condition aggravated [Unknown]
  - Eye pruritus [Unknown]

NARRATIVE: CASE EVENT DATE: 20251201
